FAERS Safety Report 20682385 (Version 2)
Quarter: 2022Q2

REPORT INFORMATION
  Report Type: Spontaneous
  Country: US (occurrence: US)
  Receive Date: 20220407
  Receipt Date: 20220524
  Transmission Date: 20220720
  Serious: No
  Sender: FDA-Public Use
  Company Number: US-Y-MABS THERAPEUTICS, INC.-SPO2022-US-000588

PATIENT

DRUGS (9)
  1. DANYELZA [Suspect]
     Active Substance: NAXITAMAB-GQGK
     Indication: Neuroblastoma
     Dosage: CYCLE 1, DOSE 1 (62.4 MG)
     Route: 042
     Dates: start: 20220207, end: 20220207
  2. DANYELZA [Suspect]
     Active Substance: NAXITAMAB-GQGK
     Dosage: CYCLE 1, DOSE 2 (62.4 MG)
     Route: 042
     Dates: start: 20220209, end: 20220209
  3. DANYELZA [Suspect]
     Active Substance: NAXITAMAB-GQGK
     Dosage: CYCLE 1, DOSE 3 (62.4 MG)
     Route: 042
     Dates: start: 20220211, end: 20220211
  4. KETAMINE [Concomitant]
     Active Substance: KETAMINE
     Indication: Premedication
     Dosage: UNK
  5. OXYCODONE [Concomitant]
     Active Substance: OXYCODONE
     Indication: Premedication
     Dosage: UNK
  6. SODIUM CHLORIDE [Concomitant]
     Active Substance: SODIUM CHLORIDE
     Indication: Premedication
     Dosage: UNK
  7. SOLU-MEDROL [Concomitant]
     Active Substance: METHYLPREDNISOLONE SODIUM SUCCINATE
     Indication: Premedication
     Dosage: UNK
  8. BENADRYL [Concomitant]
     Active Substance: DIPHENHYDRAMINE HYDROCHLORIDE
     Indication: Premedication
     Dosage: UNK
  9. NEURONTIN [Concomitant]
     Active Substance: GABAPENTIN
     Dosage: 100 MILLIGRAM, BID

REACTIONS (14)
  - Pain [Recovered/Resolved]
  - Hypotension [Recovered/Resolved]
  - Nasal congestion [Recovered/Resolved]
  - Oxygen saturation decreased [Unknown]
  - Urticaria [Unknown]
  - Pruritus [Unknown]
  - Nausea [Unknown]
  - Pain [Recovered/Resolved]
  - Hypotension [Recovered/Resolved]
  - Nasal congestion [Recovered/Resolved]
  - Oxygen saturation decreased [Unknown]
  - Pruritus [Unknown]
  - Pain [Recovered/Resolved]
  - Hypotension [Recovered/Resolved]

NARRATIVE: CASE EVENT DATE: 20220207
